FAERS Safety Report 26157255 (Version 1)
Quarter: 2025Q4

REPORT INFORMATION
  Report Type: Spontaneous
  Country: US (occurrence: US)
  Receive Date: 20251215
  Receipt Date: 20251215
  Transmission Date: 20260118
  Serious: Yes (Other)
  Sender: AMGEN
  Company Number: US-AMGEN-USASP2025244682

PATIENT

DRUGS (1)
  1. TRASTUZUMAB [Suspect]
     Active Substance: TRASTUZUMAB
     Indication: HER2 positive biliary tract cancer
     Dosage: UNK
     Route: 065

REACTIONS (3)
  - Gallbladder cancer [Unknown]
  - Cholangiocarcinoma [Unknown]
  - Off label use [Unknown]
